FAERS Safety Report 10625232 (Version 1)
Quarter: 2014Q4

REPORT INFORMATION
  Report Type: Report from Study
  Country: VE (occurrence: VE)
  Receive Date: 20141204
  Receipt Date: 20141204
  Transmission Date: 20150529
  Serious: Yes (Other)
  Sender: FDA-Public Use
  Company Number: PHHY2014VE158125

PATIENT
  Age: 67 Year
  Sex: Male

DRUGS (5)
  1. ZOMETA [Suspect]
     Active Substance: ZOLEDRONIC ACID
     Indication: METASTASES TO BONE
     Dosage: 4 MG, MONTHLY
     Route: 065
  2. CELEBREX [Suspect]
     Active Substance: CELECOXIB
     Indication: NEUROPATHY PERIPHERAL
     Dosage: 200 MG, UNK
     Route: 065
  3. METFORMIN [Concomitant]
     Active Substance: METFORMIN HYDROCHLORIDE
     Indication: BLOOD GLUCOSE ABNORMAL
     Dosage: 1000 MG, QD
     Route: 065
  4. GLIBENCLAMIDE [Concomitant]
     Active Substance: GLYBURIDE
     Indication: BLOOD GLUCOSE ABNORMAL
     Dosage: 60 MG, QD
     Route: 065
  5. BICALUTAMIDE. [Concomitant]
     Active Substance: BICALUTAMIDE
     Indication: NEOPLASM MALIGNANT
     Dosage: 50 MG, QD
     Route: 065

REACTIONS (8)
  - Neuropathy peripheral [Recovering/Resolving]
  - Gait disturbance [Recovering/Resolving]
  - Dengue fever [Recovering/Resolving]
  - Chikungunya virus infection [Recovering/Resolving]
  - Hypersensitivity [Recovering/Resolving]
  - Pain [Recovering/Resolving]
  - Balance disorder [Recovering/Resolving]
  - Diarrhoea [Recovering/Resolving]

NARRATIVE: CASE EVENT DATE: 201409
